FAERS Safety Report 8322844-6 (Version None)
Quarter: 2012Q2

REPORT INFORMATION
  Report Type: 
  Country: None (occurrence: None)
  Receive Date: 20120430
  Receipt Date: 20120424
  Transmission Date: 20120825
  Serious: Yes (Other)
  Sender: FDA-Public Use
  Company Number: PHHY2012HK034764

PATIENT
  Age: 59 Year
  Sex: Male

DRUGS (5)
  1. RIFAMPICIN [Suspect]
     Indication: PULMONARY TUBERCULOSIS
     Dosage: 600 MG, THREE TIMES A WEEK
  2. ISONIAZID [Concomitant]
     Indication: PULMONARY TUBERCULOSIS
     Dosage: 600 MG, THREE TIMES A WEEK
  3. ETHAMBUTOL HYDROCHLORIDE [Concomitant]
     Indication: PULMONARY TUBERCULOSIS
     Dosage: 1.5 G, THREE TIMES A WEEK
  4. ETHAMBUTOL HYDROCHLORIDE [Concomitant]
     Dosage: 700 MG, DAILY
  5. PYRAZINAMIDE [Concomitant]
     Indication: PULMONARY TUBERCULOSIS
     Dosage: 2 G, THREE TIMES A WEEK

REACTIONS (6)
  - BLISTER [None]
  - BLOOD BILIRUBIN INCREASED [None]
  - HEPATIC ENZYME INCREASED [None]
  - RASH [None]
  - PORPHYRIA NON-ACUTE [None]
  - DRUG ERUPTION [None]
